FAERS Safety Report 8088655-4 (Version None)
Quarter: 2012Q1

REPORT INFORMATION
  Report Type: 
  Country: None (occurrence: None)
  Receive Date: 20120128
  Receipt Date: 20110412
  Transmission Date: 20120608
  Serious: No
  Sender: FDA-Public Use
  Company Number: US-ABBOTT-11P-163-0718474-00

PATIENT
  Age: 56 Year
  Sex: Female

DRUGS (11)
  1. DEMEROL [Concomitant]
     Indication: PAIN
     Dosage: 8 TABS MONTHLY, AS NEEDED
  2. MAGNESIUM [Concomitant]
     Indication: MINERAL SUPPLEMENTATION
     Dosage: DAILY
  3. LORTAB [Concomitant]
     Indication: PAIN
  4. SOMA [Concomitant]
     Indication: MYALGIA
  5. HUMIRA [Suspect]
     Indication: RHEUMATOID ARTHRITIS
     Dates: end: 20110101
  6. MELOXICAM [Concomitant]
     Indication: ARTHRITIS
     Dosage: DAILY
  7. LASIX [Concomitant]
     Indication: SWELLING
  8. POTASSIUM [Concomitant]
     Indication: MINERAL SUPPLEMENTATION
     Dosage: DAILY
  9. FOLIC ACID [Concomitant]
     Indication: PRODUCT USED FOR UNKNOWN INDICATION
  10. HUMIRA [Suspect]
     Dates: start: 20110101
  11. METHOTREXATE [Concomitant]
     Indication: RHEUMATOID ARTHRITIS
     Dosage: 4 PILLS WEEKLY

REACTIONS (4)
  - RHEUMATOID ARTHRITIS [None]
  - DRUG DOSE OMISSION [None]
  - DRUG INEFFECTIVE [None]
  - DEVICE MALFUNCTION [None]
